FAERS Safety Report 5234475-5 (Version None)
Quarter: 2007Q1

REPORT INFORMATION
  Report Type: 
  Country: None (occurrence: None)
  Receive Date: 20070209
  Receipt Date: 20070130
  Transmission Date: 20070707
  Serious: Yes (Hospitalization)
  Sender: FDA-Public Use
  Company Number: DE-JNJFOC-20070107577

PATIENT
  Age: 7 Decade
  Sex: Female

DRUGS (12)
  1. REMICADE [Suspect]
     Route: 042
  2. REMICADE [Suspect]
     Route: 042
  3. REMICADE [Suspect]
     Route: 042
  4. REMICADE [Suspect]
     Route: 042
  5. REMICADE [Suspect]
     Route: 042
  6. REMICADE [Suspect]
     Indication: RHEUMATOID ARTHRITIS
     Route: 042
  7. LEFLUNOMIDE [Concomitant]
     Route: 065
  8. LEFLUNOMIDE [Concomitant]
     Route: 065
  9. LEFLUNOMIDE [Concomitant]
     Route: 065
  10. LEFLUNOMIDE [Concomitant]
     Route: 065
  11. LEFLUNOMIDE [Concomitant]
     Route: 065
  12. LEFLUNOMIDE [Concomitant]
     Route: 065

REACTIONS (2)
  - ATRIAL FIBRILLATION [None]
  - PERICARDITIS [None]
